FAERS Safety Report 9690210 (Version 3)
Quarter: 2014Q1

REPORT INFORMATION
  Report Type: Spontaneous
  Country: US (occurrence: US)
  Receive Date: 20131115
  Receipt Date: 20140218
  Transmission Date: 20141002
  Serious: Yes (Other)
  Sender: FDA-Public Use
  Company Number: US-JNJFOC-20131105370

PATIENT
  Age: 52 Year
  Sex: Female
  Weight: 68.49 kg

DRUGS (15)
  1. REMICADE [Suspect]
     Indication: COLITIS ULCERATIVE
     Route: 042
     Dates: end: 20131008
  2. REMICADE [Suspect]
     Indication: COLITIS ULCERATIVE
     Route: 042
     Dates: start: 20100410
  3. REMICADE [Suspect]
     Indication: COLITIS ULCERATIVE
     Route: 042
     Dates: start: 2011
  4. TAXOTERE [Suspect]
     Indication: INVASIVE DUCTAL BREAST CARCINOMA
     Route: 065
  5. ADRIAMYCIN [Suspect]
     Indication: INVASIVE DUCTAL BREAST CARCINOMA
     Route: 065
  6. CYTOXAN [Suspect]
     Indication: INVASIVE DUCTAL BREAST CARCINOMA
     Route: 065
  7. TAXOL [Suspect]
     Indication: INVASIVE DUCTAL BREAST CARCINOMA
     Route: 065
  8. COLAZAL [Concomitant]
     Route: 065
  9. ATENOLOL [Concomitant]
     Indication: PALPITATIONS
     Dosage: DAILY
     Route: 048
  10. BALSALAZIDE [Concomitant]
     Indication: COLITIS ULCERATIVE
     Route: 048
  11. GEMFIBROZIL [Concomitant]
     Indication: HYPERTRIGLYCERIDAEMIA
     Route: 048
  12. VITAMIN D3 [Concomitant]
     Route: 048
  13. TYLENOL EXTRA STRENGTH [Concomitant]
     Route: 048
  14. LORAZEPAM [Concomitant]
     Indication: SLEEP DISORDER THERAPY
     Dosage: AS NEEDED TO HELP HER SLEEP.
     Route: 048
  15. ESTRADIOL [Concomitant]
     Route: 048

REACTIONS (6)
  - Invasive ductal breast carcinoma [Unknown]
  - Neuropathy peripheral [Unknown]
  - Depression [Unknown]
  - Diarrhoea [Unknown]
  - Drug ineffective [Recovered/Resolved]
  - Anxiety [Unknown]
